FAERS Safety Report 17841244 (Version 2)
Quarter: 2020Q4

REPORT INFORMATION
  Report Type: Spontaneous
  Country: GB (occurrence: GB)
  Receive Date: 20200529
  Receipt Date: 20201013
  Transmission Date: 20210113
  Serious: Yes (Hospitalization)
  Sender: FDA-Public Use
  Company Number: NVSC2020GB137093

PATIENT
  Age: 74 Year
  Sex: Female

DRUGS (51)
  1. TRASTUZUMAB. [Suspect]
     Active Substance: TRASTUZUMAB
     Indication: BREAST CANCER METASTATIC
     Dosage: 882 MG, TIW (DOSE MODIFIED)
     Route: 041
     Dates: start: 20180116, end: 20180116
  2. PERTUZUMAB. [Suspect]
     Active Substance: PERTUZUMAB
     Dosage: 420 MG, TIW (DRUG DISCONTINUED DUE TO DISEASE PROGRESSION FURTHER ANTICANCER TREATMENT)
     Route: 042
     Dates: start: 20190118, end: 20190711
  3. HYDROCORTISONE. [Concomitant]
     Active Substance: HYDROCORTISONE
     Indication: PRODUCT USED FOR UNKNOWN INDICATION
     Dosage: 0.5 %
     Route: 061
     Dates: start: 20191025, end: 2019
  4. POTASSIUM CHLORIDE AND SODIUM CHLORIDE [Concomitant]
     Active Substance: POTASSIUM CHLORIDE\SODIUM CHLORIDE
     Indication: HYPOKALAEMIA
     Dosage: UNK
     Route: 042
     Dates: start: 20190329, end: 20190401
  5. NYSTATIN. [Concomitant]
     Active Substance: NYSTATIN
     Indication: PRODUCT USED FOR UNKNOWN INDICATION
     Dosage: 1 MG
     Route: 048
     Dates: start: 20200505, end: 20200511
  6. ENOXAPARIN [Concomitant]
     Active Substance: ENOXAPARIN
     Indication: PRODUCT USED FOR UNKNOWN INDICATION
     Dosage: 80 MG, QD
     Route: 058
     Dates: start: 202002
  7. LETROZOLE. [Suspect]
     Active Substance: LETROZOLE
     Indication: BREAST CANCER METASTATIC
     Dosage: 2.5 MG, QD
     Route: 048
     Dates: start: 20171128
  8. CAPECITABINE. [Suspect]
     Active Substance: CAPECITABINE
     Dosage: 2000 MG (0.5/DAY)
     Route: 048
     Dates: start: 20191204, end: 20200214
  9. PERTUZUMAB. [Suspect]
     Active Substance: PERTUZUMAB
     Dosage: 420 MG, TIW (DRUG DISCONTINUED DUE TO DISEASE PROGRESSION FURTHER ANTICANCER TREATMENT)
     Route: 042
     Dates: start: 20180503, end: 20181115
  10. COCODAMOL [Concomitant]
     Active Substance: ACETAMINOPHEN\CODEINE PHOSPHATE
     Indication: PRODUCT USED FOR UNKNOWN INDICATION
     Dosage: 30 MG
     Route: 048
     Dates: end: 20200512
  11. CEPHALEXIN. [Concomitant]
     Active Substance: CEPHALEXIN
     Indication: URINARY TRACT INFECTION
     Dosage: UNK
     Route: 048
     Dates: start: 20190208, end: 2019
  12. SERTRALINE [Concomitant]
     Active Substance: SERTRALINE HYDROCHLORIDE
     Indication: PRODUCT USED FOR UNKNOWN INDICATION
     Dosage: 50 MG, QD
     Route: 048
  13. LEVETIRACETAM. [Concomitant]
     Active Substance: LEVETIRACETAM
     Indication: SEIZURE
     Dosage: 250 MG (0.5/DAY)
     Route: 048
  14. VANCOMYCIN [Concomitant]
     Active Substance: VANCOMYCIN
     Indication: PRODUCT USED FOR UNKNOWN INDICATION
     Dosage: 125 MG
     Route: 050
     Dates: start: 20200302, end: 20200316
  15. LACOSAMIDE. [Concomitant]
     Active Substance: LACOSAMIDE
     Indication: PRODUCT USED FOR UNKNOWN INDICATION
     Dosage: 50 MG
     Route: 048
     Dates: start: 20200512, end: 20200519
  16. GLYCOPYRRONIUM BROMIDE [Concomitant]
     Active Substance: GLYCOPYRRONIUM
     Indication: PRODUCT USED FOR UNKNOWN INDICATION
     Dosage: 400 UG
     Route: 058
     Dates: start: 20190330
  17. ONDANSETRON [Concomitant]
     Active Substance: ONDANSETRON
     Indication: PRODUCT USED FOR UNKNOWN INDICATION
     Dosage: 4 MG
     Route: 048
     Dates: start: 2019
  18. CAPECITABINE. [Suspect]
     Active Substance: CAPECITABINE
     Indication: BREAST CANCER METASTATIC
     Dosage: 1800 MG, BIW
     Route: 048
     Dates: start: 20191011
  19. PERTUZUMAB. [Suspect]
     Active Substance: PERTUZUMAB
     Indication: BREAST CANCER METASTATIC
     Dosage: 840 MG, TIW (DOSE MODIFIED)
     Route: 042
     Dates: start: 20180116, end: 20180116
  20. DEXAMETHASONE. [Concomitant]
     Active Substance: DEXAMETHASONE
     Dosage: 8 MG
     Route: 048
     Dates: start: 202005
  21. DEXAMETHASONE. [Concomitant]
     Active Substance: DEXAMETHASONE
     Dosage: UNK
     Route: 065
  22. FOLIC ACID. [Concomitant]
     Active Substance: FOLIC ACID
     Indication: PRODUCT USED FOR UNKNOWN INDICATION
     Dosage: 5 MG, QD
     Route: 048
     Dates: start: 20160211
  23. CYCLIZINE [Concomitant]
     Active Substance: CYCLIZINE
     Indication: PRODUCT USED FOR UNKNOWN INDICATION
     Dosage: 50 MG
     Route: 048
     Dates: start: 2019, end: 20190403
  24. PARACETAMOL [Concomitant]
     Active Substance: ACETAMINOPHEN
     Indication: PRODUCT USED FOR UNKNOWN INDICATION
     Dosage: 500 MG
     Route: 048
  25. CAPECITABINE. [Suspect]
     Active Substance: CAPECITABINE
     Dosage: 1800 MG (DOSE MODIFIED)
     Route: 048
     Dates: start: 20191011, end: 20191127
  26. DEXAMETHASONE. [Concomitant]
     Active Substance: DEXAMETHASONE
     Indication: METASTASES TO CENTRAL NERVOUS SYSTEM
     Dosage: 8 MG (0.5/DAY)
     Route: 048
     Dates: start: 201812
  27. AMOXICILLIN. [Concomitant]
     Active Substance: AMOXICILLIN
     Indication: URINARY TRACT INFECTION
     Dosage: 500 MG (0.33/ DAY)
     Route: 042
     Dates: start: 20190330, end: 20190401
  28. LANSOPRAZOLE. [Concomitant]
     Active Substance: LANSOPRAZOLE
     Indication: METASTASES TO CENTRAL NERVOUS SYSTEM
     Dosage: 30 MG, QD
     Route: 048
  29. CLOTRIMAZOLE. [Concomitant]
     Active Substance: CLOTRIMAZOLE
     Indication: PRODUCT USED FOR UNKNOWN INDICATION
     Dosage: 1 %
     Route: 061
     Dates: start: 202002
  30. TRASTUZUMAB. [Suspect]
     Active Substance: TRASTUZUMAB
     Dosage: 588 MG, TIW (DRUG DISCONTINUED DUE TO DISEASE PROGRESSION FURTHER ANTICANCER TREATMENT)
     Route: 041
     Dates: start: 20180503, end: 20181115
  31. DEXAMETHASONE. [Concomitant]
     Active Substance: DEXAMETHASONE
     Dosage: 4 MG
     Route: 048
     Dates: start: 20190417, end: 20190424
  32. MORPHINE SULPHATE [Concomitant]
     Active Substance: MORPHINE SULFATE
     Indication: PRODUCT USED FOR UNKNOWN INDICATION
     Dosage: 2.5 MG
     Route: 058
     Dates: start: 20190330
  33. DEXAMETHASONE. [Concomitant]
     Active Substance: DEXAMETHASONE
     Dosage: 4 MG
     Route: 048
     Dates: start: 20190110, end: 2019
  34. NIFEDIPINE. [Concomitant]
     Active Substance: NIFEDIPINE
     Indication: PRODUCT USED FOR UNKNOWN INDICATION
     Dosage: 60 MG, QD
     Route: 048
     Dates: end: 2018
  35. METRONIDAZOLE. [Concomitant]
     Active Substance: METRONIDAZOLE
     Indication: DIARRHOEA
     Dosage: 400 MG (0.33/DAY)
     Route: 048
     Dates: start: 20190401, end: 20190403
  36. ASPIRIN. [Concomitant]
     Active Substance: ASPIRIN
     Indication: PRODUCT USED FOR UNKNOWN INDICATION
     Dosage: 75 MG, QD
     Route: 048
     Dates: start: 2019, end: 2019
  37. MIDAZOLAM. [Concomitant]
     Active Substance: MIDAZOLAM
     Indication: PRODUCT USED FOR UNKNOWN INDICATION
     Dosage: 30 MG
     Route: 058
     Dates: start: 2020
  38. MIDAZOLAM. [Concomitant]
     Active Substance: MIDAZOLAM
     Dosage: 2.5 MG
     Route: 058
  39. SIMVASTATIN. [Concomitant]
     Active Substance: SIMVASTATIN
     Indication: PRODUCT USED FOR UNKNOWN INDICATION
     Dosage: 20 MG, QD
     Route: 048
     Dates: start: 2019
  40. DEXAMETHASONE. [Concomitant]
     Active Substance: DEXAMETHASONE
     Dosage: 6 MG
     Route: 048
     Dates: end: 20190109
  41. LANSOPRAZOLE. [Concomitant]
     Active Substance: LANSOPRAZOLE
     Dosage: 30 MG, QD
     Route: 048
     Dates: start: 201812
  42. LACOSAMIDE. [Concomitant]
     Active Substance: LACOSAMIDE
     Dosage: 100 MG
     Route: 048
     Dates: start: 20200519
  43. MIDAZOLAM. [Concomitant]
     Active Substance: MIDAZOLAM
     Dosage: 10 MG
     Route: 050
     Dates: start: 2020
  44. TRASTUZUMAB. [Suspect]
     Active Substance: TRASTUZUMAB
     Dosage: 588 MG, TIW
     Route: 041
     Dates: start: 20190118
  45. DEXAMETHASONE. [Concomitant]
     Active Substance: DEXAMETHASONE
     Dosage: 2 MG, QD
     Route: 048
     Dates: start: 20190425, end: 2019
  46. NITROFURANTOIN. [Concomitant]
     Active Substance: NITROFURANTOIN
     Indication: URINARY TRACT INFECTION
     Dosage: 50 MG (0.25/DAY)
     Route: 048
     Dates: start: 20190403, end: 20190405
  47. ROSUVASTATIN. [Concomitant]
     Active Substance: ROSUVASTATIN
     Indication: PRODUCT USED FOR UNKNOWN INDICATION
     Dosage: 5 MG, QD
     Route: 048
     Dates: end: 2019
  48. DENOSUMAB [Concomitant]
     Active Substance: DENOSUMAB
     Indication: PRODUCT USED FOR UNKNOWN INDICATION
     Dosage: 120 MG
     Route: 058
     Dates: start: 20180503, end: 20200214
  49. LEVETIRACETAM. [Concomitant]
     Active Substance: LEVETIRACETAM
     Dosage: 1500 MG
     Route: 048
  50. METFORMIN [Concomitant]
     Active Substance: METFORMIN HYDROCHLORIDE
     Indication: PRODUCT USED FOR UNKNOWN INDICATION
     Dosage: 500 MG, QD
     Route: 048
     Dates: end: 2018
  51. PROCHLORPERAZINE. [Concomitant]
     Active Substance: PROCHLORPERAZINE
     Indication: PRODUCT USED FOR UNKNOWN INDICATION
     Dosage: 3 MG
     Route: 065
     Dates: start: 2020

REACTIONS (1)
  - Dyspnoea [Recovered/Resolved]

NARRATIVE: CASE EVENT DATE: 20200224
